FAERS Safety Report 23400744 (Version 1)
Quarter: 2024Q1

REPORT INFORMATION
  Report Type: Spontaneous
  Country: TR (occurrence: TR)
  Receive Date: 20240115
  Receipt Date: 20240115
  Transmission Date: 20240410
  Serious: Yes (Other)
  Sender: FDA-Public Use
  Company Number: TR-ABBVIE-5584956

PATIENT
  Age: 8 Year
  Sex: Male

DRUGS (2)
  1. CYCLOSPORINE [Suspect]
     Active Substance: CYCLOSPORINE
     Indication: Prophylaxis against graft versus host disease
     Route: 048
  2. Mycophenolate Mofentil [Concomitant]
     Indication: Prophylaxis against graft versus host disease
     Route: 065

REACTIONS (5)
  - Autoimmune haemolytic anaemia [Unknown]
  - Immune thrombocytopenia [Not Recovered/Not Resolved]
  - Diarrhoea [Unknown]
  - Off label use [Unknown]
  - Cytomegalovirus infection [Unknown]
